FAERS Safety Report 8593935-X (Version None)
Quarter: 2012Q3

REPORT INFORMATION
  Report Type: 
  Country: None (occurrence: None)
  Receive Date: 20120814
  Receipt Date: 20120803
  Transmission Date: 20120928
  Serious: Yes (Other)
  Sender: FDA-Public Use
  Company Number: AU-PERRIGO-12AU006688

PATIENT
  Age: 54 Year
  Sex: Female

DRUGS (1)
  1. IMIQUIMOD [Suspect]
     Indication: BASAL CELL CARCINOMA
     Dosage: UNKNOWN, UNKNOWN
     Route: 065

REACTIONS (8)
  - RETINAL VEIN OCCLUSION [None]
  - BLINDNESS TRANSIENT [None]
  - VISION BLURRED [None]
  - FACIAL PAIN [None]
  - HYPHAEMA [None]
  - EYE PAIN [None]
  - EYELID OEDEMA [None]
  - SCLERITIS [None]
